FAERS Safety Report 8600854-9 (Version None)
Quarter: 2012Q3

REPORT INFORMATION
  Report Type: 
  Country: None (occurrence: None)
  Receive Date: 20120817
  Receipt Date: 20120814
  Transmission Date: 20120928
  Serious: Yes (Hospitalization)
  Sender: FDA-Public Use
  Company Number: FR-SANOFI-AVENTIS-2012SA058293

PATIENT
  Age: 90 Year
  Sex: Male

DRUGS (10)
  1. INVANZ [Suspect]
     Route: 051
     Dates: start: 20120712, end: 20120726
  2. VIBRAMYCIN [Suspect]
     Route: 048
     Dates: start: 20120712
  3. REMINYL /UNK/ [Concomitant]
  4. FORADIL [Concomitant]
  5. LOVENOX [Suspect]
     Dosage: 4000IU/0.4ML
     Route: 058
     Dates: start: 20120712
  6. ALFUZOSIN HYDROCHLORIDE [Concomitant]
     Dosage: DOSE: 10
  7. CORDARONE [Concomitant]
  8. FLIXOTIDE ^GLAXO^ [Concomitant]
  9. HYPERIUM [Concomitant]
  10. ASPIRIN [Concomitant]

REACTIONS (4)
  - DISTURBANCE IN ATTENTION [None]
  - MYOCLONUS [None]
  - DYSKINESIA [None]
  - HALLUCINATION, VISUAL [None]
